FAERS Safety Report 7799165-3 (Version None)
Quarter: 2011Q4

REPORT INFORMATION
  Report Type: 
  Country: None (occurrence: None)
  Receive Date: 20111006
  Receipt Date: 20111004
  Transmission Date: 20120403
  Serious: Yes (Hospitalization)
  Sender: FDA-Public Use
  Company Number: IT-SANOFI-AVENTIS-2011SA064775

PATIENT
  Sex: Male

DRUGS (6)
  1. TAXOTERE [Suspect]
     Indication: HEAD AND NECK CANCER
     Dates: start: 20110922, end: 20110922
  2. FLUOROURACIL [Suspect]
     Indication: HEAD AND NECK CANCER
     Dates: start: 20110922, end: 20110922
  3. ATORVASTATIN CALCIUM [Concomitant]
     Dates: end: 20110930
  4. CISPLATIN [Suspect]
     Indication: HEAD AND NECK CANCER
     Dates: start: 20110922, end: 20110922
  5. ASPIRIN [Concomitant]
     Dates: end: 20110930
  6. CIPROFLOXACIN [Concomitant]
     Dates: end: 20110930

REACTIONS (6)
  - DYSPHAGIA [None]
  - HEPATIC NECROSIS [None]
  - RENAL FAILURE ACUTE [None]
  - NEUTROPENIA [None]
  - HYPONATRAEMIA [None]
  - THROMBOCYTOPENIA [None]
